FAERS Safety Report 5474492-3 (Version None)
Quarter: 2007Q4

REPORT INFORMATION
  Report Type: 
  Country: None (occurrence: None)
  Receive Date: 20071002
  Receipt Date: 20070920
  Transmission Date: 20080405
  Serious: Yes (Hospitalization)
  Sender: FDA-Public Use
  Company Number: FR-AMGEN-UK242464

PATIENT
  Sex: Male
  Weight: 81 kg

DRUGS (8)
  1. VECTIBIX [Suspect]
     Indication: COLORECTAL CANCER
     Route: 042
     Dates: start: 20070820, end: 20070820
  2. ZOFRAN [Suspect]
  3. SOLU-MEDROL [Suspect]
  4. DURAGESIC-100 [Concomitant]
  5. PROPOFOL [Concomitant]
  6. PRIMPERAN [Concomitant]
  7. IMOVANE [Concomitant]
  8. LANSOYL [Concomitant]

REACTIONS (7)
  - ASTHENIA [None]
  - DIARRHOEA [None]
  - FEELING HOT [None]
  - HYPERTHERMIA [None]
  - MALAISE [None]
  - PARAESTHESIA [None]
  - PRURITUS [None]
